FAERS Safety Report 24963284 (Version 3)
Quarter: 2025Q3

REPORT INFORMATION
  Report Type: Spontaneous
  Country: US (occurrence: US)
  Receive Date: 20250213
  Receipt Date: 20250925
  Transmission Date: 20251020
  Serious: Yes (Hospitalization, Other)
  Sender: NOVO NORDISK
  Company Number: US-NOVOPROD-1365204

PATIENT
  Age: 38 Year
  Sex: Female
  Weight: 123.36 kg

DRUGS (5)
  1. OZEMPIC [Suspect]
     Active Substance: SEMAGLUTIDE
     Indication: Obesity
  2. OZEMPIC [Suspect]
     Active Substance: SEMAGLUTIDE
     Indication: Type 2 diabetes mellitus
     Dosage: 0.25 MG, QW
     Dates: start: 2021, end: 2021
  3. OZEMPIC [Suspect]
     Active Substance: SEMAGLUTIDE
     Indication: Type 2 diabetes mellitus
     Dosage: 1.25 MG, QW
     Dates: start: 2021, end: 2021
  4. OZEMPIC [Suspect]
     Active Substance: SEMAGLUTIDE
     Indication: Obesity
  5. METFORMIN [Concomitant]
     Active Substance: METFORMIN HYDROCHLORIDE
     Indication: Type 2 diabetes mellitus
     Dates: start: 20170601, end: 20220501

REACTIONS (5)
  - Gastroenteritis [Not Recovered/Not Resolved]
  - Cholecystectomy [Recovered/Resolved]
  - Intestinal obstruction [Not Recovered/Not Resolved]
  - Depression [Unknown]
  - Off label use [Unknown]

NARRATIVE: CASE EVENT DATE: 20210301
